FAERS Safety Report 10442373 (Version 1)
Quarter: 2014Q3

REPORT INFORMATION
  Report Type: Spontaneous
  Country: FR (occurrence: FR)
  Receive Date: 20140909
  Receipt Date: 20140909
  Transmission Date: 20150326
  Serious: Yes (Other)
  Sender: FDA-Public Use
  Company Number: FR-TEVA-506224ISR

PATIENT
  Age: 53 Year
  Sex: Female

DRUGS (1)
  1. PROPRANOLOL RATHIOPHARM LP [Suspect]
     Active Substance: PROPRANOLOL HYDROCHLORIDE
     Indication: HYPERTENSION
     Dosage: 320 MILLIGRAM DAILY; 2 DF WAS TAKEN BY MISTAKE
     Route: 048
     Dates: start: 20140810

REACTIONS (4)
  - Headache [Recovered/Resolved]
  - Vertigo [Recovered/Resolved]
  - Medication error [Recovered/Resolved]
  - Paraesthesia [Recovered/Resolved]

NARRATIVE: CASE EVENT DATE: 20140810
